FAERS Safety Report 6753884-6 (Version None)
Quarter: 2010Q2

REPORT INFORMATION
  Report Type: 
  Country: None (occurrence: None)
  Receive Date: 20100603
  Receipt Date: 20100525
  Transmission Date: 20101027
  Serious: Yes (Other)
  Sender: FDA-Public Use
  Company Number: US-ASTRAZENECA-2010SE23821

PATIENT
  Sex: Male

DRUGS (2)
  1. ATENOLOL [Suspect]
  2. ALFUZOSIN HCL [Suspect]
     Route: 048

REACTIONS (1)
  - PRESYNCOPE [None]
